FAERS Safety Report 7991633-4 (Version None)
Quarter: 2011Q4

REPORT INFORMATION
  Report Type: 
  Country: None (occurrence: None)
  Receive Date: 20111219
  Receipt Date: 20111209
  Transmission Date: 20120403
  Serious: Yes (Other)
  Sender: FDA-Public Use
  Company Number: PHHY2011AU109362

PATIENT
  Age: 87 Year
  Sex: Female

DRUGS (11)
  1. LERCANIDIPINE [Suspect]
     Indication: ESSENTIAL HYPERTENSION
     Dosage: 20 MG, QD
     Route: 048
  2. SIMVASTATIN [Concomitant]
  3. AMIODARONE HYDROCHLORIDE [Suspect]
     Indication: ARRHYTHMIA
     Dosage: 100 MG, UNK
     Route: 048
     Dates: start: 20110330
  4. PERINDOPRIL ERBUMINE [Suspect]
     Indication: ESSENTIAL HYPERTENSION
     Dosage: 8 MG, UNK
     Route: 048
     Dates: start: 20110330
  5. ATACAND [Suspect]
     Indication: ESSENTIAL HYPERTENSION
     Dosage: 1 DF, UNK
     Route: 048
     Dates: end: 20110330
  6. CHLORTHALIDONE [Suspect]
     Indication: ESSENTIAL HYPERTENSION
     Dosage: 25 MG, UNK
     Route: 048
     Dates: start: 20110330
  7. ACETYLSALICYLIC ACID SRT [Concomitant]
  8. LEVOTHYROXINE SODIUM [Suspect]
     Indication: MYXOEDEMA
     Dosage: 100 UG, UNK
     Route: 048
  9. ATENOLOL [Suspect]
     Indication: ESSENTIAL HYPERTENSION
     Dosage: 50 MG, UNK
     Route: 048
     Dates: end: 20110316
  10. AMOXICILLIN [Concomitant]
  11. METHYLDOPA [Suspect]
     Indication: ESSENTIAL HYPERTENSION
     Dosage: 4 DF, UNK
     Route: 048
     Dates: start: 20110316

REACTIONS (4)
  - ORTHOSTATIC HYPOTENSION [None]
  - SYNCOPE [None]
  - DIZZINESS [None]
  - NAUSEA [None]
